FAERS Safety Report 6271240-4 (Version None)
Quarter: 2009Q3

REPORT INFORMATION
  Report Type: 
  Country: None (occurrence: None)
  Receive Date: 20090717
  Receipt Date: 20090710
  Transmission Date: 20100115
  Serious: Yes (Other)
  Sender: FDA-Public Use
  Company Number: JP-JNJFOC-20090603271

PATIENT
  Sex: Male
  Weight: 41 kg

DRUGS (5)
  1. RISPERDAL [Suspect]
     Dosage: AFTER SUPPER
     Route: 048
  2. RISPERDAL [Suspect]
     Dosage: AFTER SUPPER
     Route: 048
  3. RISPERDAL [Suspect]
     Indication: PSYCHOTIC DISORDER
     Dosage: AFTER BREAKFAST AND SUPPER
     Route: 048
  4. ALL OTHER THERAPEUTIC PRODUCTS [Concomitant]
     Indication: PSYCHOTIC DISORDER
     Route: 048
  5. ASPIRIN DIALUMINATE [Concomitant]
     Indication: WOLFF-PARKINSON-WHITE SYNDROME
     Route: 048

REACTIONS (2)
  - DIABETES MELLITUS [None]
  - DRUG INEFFECTIVE [None]
